FAERS Safety Report 4748261-3 (Version None)
Quarter: 2005Q3

REPORT INFORMATION
  Report Type: 
  Country: None (occurrence: None)
  Receive Date: 20050815
  Receipt Date: 20050527
  Transmission Date: 20060218
  Serious: No
  Sender: FDA-Public Use
  Company Number: USA050599280

PATIENT
  Age: 81 Year
  Sex: Male

DRUGS (1)
  1. CIALIS [Suspect]
     Dosage: 20 MG AS NEEDED
     Dates: start: 20050401

REACTIONS (1)
  - THERAPEUTIC RESPONSE DELAYED [None]
